FAERS Safety Report 9775346 (Version 2)
Quarter: 2014Q1

REPORT INFORMATION
  Report Type: Spontaneous
  Country: GR (occurrence: GR)
  Receive Date: 20131220
  Receipt Date: 20140218
  Transmission Date: 20141002
  Serious: Yes (Other)
  Sender: FDA-Public Use
  Company Number: GR-PFIZER INC-2013361234

PATIENT
  Age: 42 Year
  Sex: Female

DRUGS (1)
  1. VIBRAMYCIN [Suspect]
     Indication: INFECTION PROPHYLAXIS
     Dosage: 100 MG, 2X/DAY
     Route: 048
     Dates: start: 20131214, end: 20131220

REACTIONS (2)
  - Hypothermia [Recovered/Resolved]
  - Abdominal pain [Recovered/Resolved]
